FAERS Safety Report 12475523 (Version 1)
Quarter: 2016Q2

REPORT INFORMATION
  Report Type: Spontaneous
  Country: GB (occurrence: GB)
  Receive Date: 20160617
  Receipt Date: 20160617
  Transmission Date: 20160815
  Serious: Yes (Hospitalization)
  Sender: FDA-Public Use
  Company Number: GB-SUN PHARMACEUTICAL INDUSTRIES LTD-2016RR-118627

PATIENT
  Age: 14 Year
  Sex: Female

DRUGS (1)
  1. SERTRALINE [Suspect]
     Active Substance: SERTRALINE HYDROCHLORIDE
     Indication: PRODUCT USED FOR UNKNOWN INDICATION
     Dosage: 150 MG, QD
     Route: 065
     Dates: start: 201512

REACTIONS (8)
  - Neurological symptom [Unknown]
  - Sensory loss [Unknown]
  - Abnormal weight gain [Unknown]
  - Asthenia [Unknown]
  - Strabismus [Unknown]
  - Dizziness [Unknown]
  - Blindness [Unknown]
  - Amenorrhoea [Unknown]
